FAERS Safety Report 8888869 (Version 1)
Quarter: 2012Q4

REPORT INFORMATION
  Report Type: 
  Country: CA (occurrence: CA)
  Receive Date: 20121106
  Receipt Date: 20121106
  Transmission Date: 20130627
  Serious: Yes (Other)
  Sender: FDA-Public Use
  Company Number: CA-009507513-1211CAN000313

PATIENT

DRUGS (2)
  1. VICTRELIS [Suspect]
     Indication: PRODUCT USED FOR UNKNOWN INDICATION
  2. PEGETRON [Suspect]
     Indication: PRODUCT USED FOR UNKNOWN INDICATION
     Dosage: 150 Microgram, UNK

REACTIONS (3)
  - Metastatic neoplasm [Unknown]
  - Jaundice [Unknown]
  - Obstruction [Unknown]
